FAERS Safety Report 13747324 (Version 2)
Quarter: 2017Q3

REPORT INFORMATION
  Report Type: Spontaneous
  Country: PT (occurrence: PT)
  Receive Date: 20170712
  Receipt Date: 20170824
  Transmission Date: 20171127
  Serious: Yes (Hospitalization)
  Sender: FDA-Public Use
  Company Number: PT-BAYER-2017-130867

PATIENT
  Age: 57 Year
  Sex: Male

DRUGS (2)
  1. CIPRO [Suspect]
     Active Substance: CIPROFLOXACIN HYDROCHLORIDE
     Indication: ABDOMINAL INFECTION
  2. CIPRO [Suspect]
     Active Substance: CIPROFLOXACIN HYDROCHLORIDE
     Indication: SEPTIC SHOCK

REACTIONS (1)
  - General physical health deterioration [None]
